FAERS Safety Report 4339806-6 (Version None)
Quarter: 2004Q2

REPORT INFORMATION
  Report Type: 
  Country: None (occurrence: None)
  Receive Date: 20040416
  Receipt Date: 20031118
  Transmission Date: 20050107
  Serious: No
  Sender: FDA-Public Use
  Company Number: US-BRISTOL-MYERS SQUIBB COMPANY-12438925

PATIENT
  Age: 77 Year
  Sex: Female
  Weight: 51 kg

DRUGS (3)
  1. CAPTOPRIL [Suspect]
     Indication: HYPERTENSION
     Route: 048
     Dates: start: 20031112
  2. INDERAL [Concomitant]
  3. COGENTIN [Concomitant]

REACTIONS (1)
  - DIARRHOEA [None]
